FAERS Safety Report 8117723-3 (Version None)
Quarter: 2011Q4

REPORT INFORMATION
  Report Type: 
  Country: None (occurrence: None)
  Receive Date: 20111227
  Receipt Date: 20101223
  Transmission Date: 20120403
  Serious: Yes (Other)
  Sender: FDA-Public Use
  Company Number: PHHY2010US88745

PATIENT

DRUGS (3)
  1. AREDIA [Concomitant]
  2. ZOLADEX [Concomitant]
  3. FEMARA [Suspect]

REACTIONS (1)
  - OSTEOPOROSIS [None]
